FAERS Safety Report 7954263-6 (Version None)
Quarter: 2011Q4

REPORT INFORMATION
  Report Type: 
  Country: None (occurrence: None)
  Receive Date: 20111129
  Receipt Date: 20111118
  Transmission Date: 20120403
  Serious: Yes (Death)
  Sender: FDA-Public Use
  Company Number: NGX_00709_2011

PATIENT
  Sex: Female

DRUGS (2)
  1. ANTIHYPERTENSIVE MEDICATIONS (UNKNOWN) [Concomitant]
  2. QUTENZA [Suspect]
     Indication: PRODUCT USED FOR UNKNOWN INDICATION
     Dosage: TOPICAL
     Route: 061
     Dates: start: 20111116

REACTIONS (1)
  - CARDIAC DEATH [None]
